FAERS Safety Report 9177039 (Version 1)
Quarter: 2013Q1

REPORT INFORMATION
  Report Type: Spontaneous
  Country: US (occurrence: None)
  Receive Date: 20130320
  Receipt Date: 20130320
  Transmission Date: 20140127
  Serious: Yes (Hospitalization)
  Sender: FDA-Public Use
  Company Number: None

PATIENT
  Age: 55 Year
  Sex: Male
  Weight: 120.66 kg

DRUGS (1)
  1. COMBIGAN [Suspect]
     Route: 031
     Dates: start: 20130204, end: 20130221

REACTIONS (8)
  - Vomiting [None]
  - Diarrhoea [None]
  - Dizziness [None]
  - Balance disorder [None]
  - Excessive eye blinking [None]
  - Vision blurred [None]
  - Visual field defect [None]
  - Gait disturbance [None]
